FAERS Safety Report 15001088 (Version 1)
Quarter: 2018Q2

REPORT INFORMATION
  Report Type: Report from Study
  Country: US (occurrence: US)
  Receive Date: 20180612
  Receipt Date: 20180612
  Transmission Date: 20180711
  Serious: No
  Sender: FDA-Public Use
  Company Number: US-ALEXION PHARMACEUTICALS INC.-A201806992

PATIENT
  Sex: Female

DRUGS (3)
  1. SOLIRIS [Suspect]
     Active Substance: ECULIZUMAB
     Indication: PRODUCT USED FOR UNKNOWN INDICATION
     Dosage: UNK
     Route: 065
  2. SOLIRIS [Suspect]
     Active Substance: ECULIZUMAB
     Dosage: UNK, Q14 DAYS
     Route: 065
  3. SOLIRIS [Suspect]
     Active Substance: ECULIZUMAB
     Dosage: UNK
     Route: 065

REACTIONS (4)
  - Blood test abnormal [Unknown]
  - Inappropriate schedule of drug administration [Recovered/Resolved]
  - Discomfort [Unknown]
  - Malaise [Unknown]

NARRATIVE: CASE EVENT DATE: 201711
